FAERS Safety Report 21124481 (Version 1)
Quarter: 2022Q3

REPORT INFORMATION
  Report Type: Spontaneous
  Country: US (occurrence: None)
  Receive Date: 20220722
  Receipt Date: 20220722
  Transmission Date: 20221026
  Serious: No
  Sender: FDA-Public Use
  Company Number: None

PATIENT
  Sex: Female

DRUGS (1)
  1. STELARA [Suspect]
     Active Substance: USTEKINUMAB
     Indication: Psoriasis
     Dosage: OTHER FREQUENCY : Q12 WKS;?
     Route: 058
     Dates: start: 20201127

REACTIONS (6)
  - Therapeutic product effect decreased [None]
  - Disease recurrence [None]
  - Therapy interrupted [None]
  - Condition aggravated [None]
  - Therapy non-responder [None]
  - Stress [None]
